FAERS Safety Report 5838440-6 (Version None)
Quarter: 2008Q3

REPORT INFORMATION
  Report Type: 
  Country: None (occurrence: None)
  Receive Date: 20080806
  Receipt Date: 20080724
  Transmission Date: 20090109
  Serious: Yes (Hospitalization)
  Sender: FDA-Public Use
  Company Number: 2008AL008187

PATIENT
  Age: 62 Year
  Sex: Female
  Weight: 74.3899 kg

DRUGS (5)
  1. DIGOXIN [Suspect]
     Indication: CARDIAC DISORDER
     Dosage: 0.125MG, DAILY, PO
     Route: 048
     Dates: start: 20070501, end: 20080301
  2. PREVACID [Concomitant]
  3. COREG [Concomitant]
  4. WARFARIN SODIUM [Concomitant]
  5. AMIODARONE [Concomitant]

REACTIONS (8)
  - BRADYCARDIA [None]
  - DEHYDRATION [None]
  - DIARRHOEA [None]
  - DIZZINESS [None]
  - FALL [None]
  - HEAD INJURY [None]
  - SYNCOPE [None]
  - VOMITING [None]
